FAERS Safety Report 6445042-X (Version None)
Quarter: 2009Q4

REPORT INFORMATION
  Report Type: 
  Country: None (occurrence: None)
  Receive Date: 20091118
  Receipt Date: 20091103
  Transmission Date: 20100525
  Serious: Yes (Other)
  Sender: FDA-Public Use
  Company Number: DE-PFIZER INC-2009298789

PATIENT
  Age: 79 Year
  Sex: Male

DRUGS (3)
  1. ARGATRA [Suspect]
     Indication: HEPARIN-INDUCED THROMBOCYTOPENIA
     Dosage: UNK
     Route: 042
     Dates: start: 20090710
  2. AMIODARONE HYDROCHLORIDE [Concomitant]
     Dosage: 1200 MG, UNK
  3. CLOFIBRATE [Concomitant]
     Dosage: 288 UG/KG, UNK

REACTIONS (2)
  - VENTRICULAR FIBRILLATION [None]
  - VENTRICULAR TACHYCARDIA [None]
